FAERS Safety Report 8182616-2 (Version None)
Quarter: 2012Q1

REPORT INFORMATION
  Report Type: 
  Country: None (occurrence: None)
  Receive Date: 20120305
  Receipt Date: 20120223
  Transmission Date: 20120608
  Serious: Yes (Hospitalization)
  Sender: FDA-Public Use
  Company Number: US-BAYER-2012-002786

PATIENT
  Age: 25 Year
  Sex: Female

DRUGS (6)
  1. VENTOLIN [Concomitant]
     Indication: ASTHMA
     Dosage: 2 PUFF(S), PRN
     Dates: start: 20090101, end: 20100301
  2. ZYRTEC [Concomitant]
     Dosage: 20 MG, QD
  3. YAZ [Suspect]
     Dosage: UNK
     Route: 048
     Dates: start: 20090601, end: 20100401
  4. ACIPHEX [Concomitant]
     Indication: ABDOMINAL PAIN UPPER
     Dosage: 20 MG, QD
  5. ALLEGRA [Concomitant]
     Indication: URTICARIA
     Dosage: 180 MG, PRN
  6. PREDNISONE [Concomitant]

REACTIONS (7)
  - FEAR [None]
  - EMOTIONAL DISTRESS [None]
  - PULMONARY EMBOLISM [None]
  - PAIN [None]
  - ANXIETY [None]
  - PSYCHOLOGICAL TRAUMA [None]
  - INJURY [None]
